FAERS Safety Report 8429718-0 (Version None)
Quarter: 2012Q2

REPORT INFORMATION
  Report Type: 
  Country: None (occurrence: None)
  Receive Date: 20120612
  Receipt Date: 20120529
  Transmission Date: 20120825
  Serious: No
  Sender: FDA-Public Use
  Company Number: US-ASTRAZENECA-2012SE35223

PATIENT
  Sex: Female

DRUGS (1)
  1. SYMBICORT [Suspect]
     Route: 055

REACTIONS (6)
  - THROAT IRRITATION [None]
  - BONE DENSITY ABNORMAL [None]
  - PARKINSON'S DISEASE [None]
  - ADVERSE DRUG REACTION [None]
  - BACK PAIN [None]
  - MUSCULOSKELETAL PAIN [None]
